FAERS Safety Report 7472577-3 (Version None)
Quarter: 2011Q2

REPORT INFORMATION
  Report Type: 
  Country: None (occurrence: None)
  Receive Date: 20110511
  Receipt Date: 20110425
  Transmission Date: 20111010
  Serious: No
  Sender: FDA-Public Use
  Company Number: US-B.I. PHARMACEUTICALS,INC./RIDGEFIELD-2011-BP-11730BP

PATIENT
  Age: 72 Year
  Sex: Female

DRUGS (8)
  1. ZANTAC 150 [Suspect]
     Indication: DYSPEPSIA
     Dosage: 150 MG
     Route: 048
     Dates: start: 20110424
  2. ZOLOFT [Concomitant]
     Indication: DEPRESSION
  3. ASPIRIN [Concomitant]
     Indication: MYOCARDIAL INFARCTION
     Dates: start: 20100601
  4. SIMVASTATIN [Concomitant]
     Indication: MYOCARDIAL INFARCTION
     Dates: start: 20100601
  5. LISINOPRIL [Concomitant]
     Indication: HYPERTENSION
  6. PLAVIX [Concomitant]
     Indication: MYOCARDIAL INFARCTION
     Dates: start: 20100601
  7. XANAX [Concomitant]
     Indication: DEPRESSION
  8. CARVEDILOL [Concomitant]
     Indication: HYPERTENSION

REACTIONS (1)
  - DYSPEPSIA [None]
